FAERS Safety Report 5538142-X (Version None)
Quarter: 2007Q4

REPORT INFORMATION
  Report Type: 
  Country: None (occurrence: None)
  Receive Date: 20071207
  Receipt Date: 20071127
  Transmission Date: 20080405
  Serious: Yes (Other)
  Sender: FDA-Public Use
  Company Number: US-PFIZER INC-2007101622

PATIENT
  Age: 45 Year
  Sex: Female
  Weight: 54.545 kg

DRUGS (1)
  1. CHANTIX [Suspect]
     Indication: SMOKING CESSATION THERAPY
     Route: 048

REACTIONS (15)
  - ACUTE PSYCHOSIS [None]
  - AGEUSIA [None]
  - ANGER [None]
  - ANOREXIA [None]
  - ANOSMIA [None]
  - ARTHRALGIA [None]
  - EUPHORIC MOOD [None]
  - FEELING ABNORMAL [None]
  - HEADACHE [None]
  - MYALGIA [None]
  - NERVOUSNESS [None]
  - RESPIRATORY DISORDER [None]
  - SEXUAL DYSFUNCTION [None]
  - SLEEP DISORDER [None]
  - VISUAL DISTURBANCE [None]
